FAERS Safety Report 15327305 (Version 2)
Quarter: 2018Q4

REPORT INFORMATION
  Report Type: Spontaneous
  Country: None (occurrence: CO)
  Receive Date: 20180828
  Receipt Date: 20181106
  Transmission Date: 20190204
  Serious: Yes (Other)
  Sender: FDA-Public Use
  Company Number: CO-POPULATION COUNCIL, INC.-2054360

PATIENT
  Age: 21 Year
  Sex: Female
  Weight: 55 kg

DRUGS (1)
  1. JADELLE [Suspect]
     Active Substance: LEVONORGESTREL
     Indication: CONTRACEPTION
     Route: 059
     Dates: start: 20180210, end: 20180510

REACTIONS (7)
  - Hypoglycaemia [Unknown]
  - Metrorrhagia [None]
  - Hypotension [Unknown]
  - Haemoglobin decreased [None]
  - Migraine with aura [None]
  - Anaemia [Unknown]
  - Platelet count decreased [None]

NARRATIVE: CASE EVENT DATE: 20180223
